FAERS Safety Report 10615198 (Version 2)
Quarter: 2014Q4

REPORT INFORMATION
  Report Type: Spontaneous
  Country: US (occurrence: US)
  Receive Date: 20141201
  Receipt Date: 20141201
  Transmission Date: 20150529
  Serious: No
  Sender: FDA-Public Use
  Company Number: US-PFIZER INC-2014315301

PATIENT
  Age: 20 Year
  Sex: Female

DRUGS (1)
  1. ADVIL [Suspect]
     Active Substance: IBUPROFEN
     Indication: STRESS
     Dosage: 200 MG, UNK

REACTIONS (3)
  - Vomiting [Unknown]
  - Intentional product misuse [Unknown]
  - Overdose [Unknown]
